FAERS Safety Report 7969878-9 (Version None)
Quarter: 2011Q4

REPORT INFORMATION
  Report Type: 
  Country: None (occurrence: None)
  Receive Date: 20111122
  Receipt Date: 20110812
  Transmission Date: 20120403
  Serious: No
  Sender: FDA-Public Use
  Company Number: PHEH2011US01514

PATIENT
  Age: 62 Year
  Sex: Female
  Weight: 132.4 kg

DRUGS (11)
  1. HUMALOG [Concomitant]
  2. PROVIGIL [Concomitant]
  3. LANTUS [Concomitant]
  4. ATENOLOL [Concomitant]
  5. GABAPENTIN [Concomitant]
  6. ASPIRIN [Concomitant]
  7. FAMPRIDINE (FAMPRIDINE) [Concomitant]
  8. ACTOS (PIOGLITAZONE, PIOGLITAZONE HYDROCHLORIDE) [Concomitant]
  9. GILENYA [Suspect]
     Dosage: 0.5 MG, QD, ORAL
     Route: 048
  10. SIMVASTATIN [Concomitant]
  11. LISINOPRIL [Concomitant]

REACTIONS (3)
  - FATIGUE [None]
  - COUGH [None]
  - NAUSEA [None]
